FAERS Safety Report 19844427 (Version 2)
Quarter: 2021Q3

REPORT INFORMATION
  Report Type: Spontaneous
  Country: US (occurrence: US)
  Receive Date: 20210916
  Receipt Date: 20210927
  Transmission Date: 20211014
  Serious: Yes (Other)
  Sender: FDA-Public Use
  Company Number: US-TEVA-2021-US-1952564

PATIENT
  Age: 68 Year
  Sex: Female

DRUGS (9)
  1. MIDOSTAURIN [Concomitant]
     Active Substance: MIDOSTAURIN
     Indication: ACUTE MYELOID LEUKAEMIA
     Route: 065
  2. SORAFENIB [Concomitant]
     Active Substance: SORAFENIB
     Indication: ACUTE MYELOID LEUKAEMIA
     Route: 065
  3. IDARUBICIN [Suspect]
     Active Substance: IDARUBICIN
     Indication: ACUTE MYELOID LEUKAEMIA
     Dosage: CYTARABINE AND IDARUBICIN (7+3)
     Route: 065
  4. DAUNORUBICIN [Suspect]
     Active Substance: DAUNORUBICIN
     Indication: ACUTE MYELOID LEUKAEMIA
     Dosage: CYTARABINE AND DAUNORUBICIN (7+3),
     Route: 065
  5. DECITABINE. [Concomitant]
     Active Substance: DECITABINE
     Indication: ACUTE MYELOID LEUKAEMIA
     Dosage: 3 CYCLES
     Route: 065
  6. CYTARABINE. [Suspect]
     Active Substance: CYTARABINE
     Indication: ACUTE MYELOID LEUKAEMIA
     Dosage: CYTARABINE AND IDARUBICIN (7+3)
     Route: 065
  7. GILTERITINIB [Suspect]
     Active Substance: GILTERITINIB
     Indication: ACUTE MYELOID LEUKAEMIA
     Dosage: 120 MILLIGRAM DAILY;
     Route: 048
  8. CYTARABINE. [Suspect]
     Active Substance: CYTARABINE
     Dosage: CYTARABINE AND DAUNORUBICIN (7+3)
     Route: 065
  9. CLADRIBINE. [Suspect]
     Active Substance: CLADRIBINE
     Indication: ACUTE MYELOID LEUKAEMIA
     Route: 065

REACTIONS (13)
  - Vaginal haemorrhage [Unknown]
  - Hypoglycaemia [Unknown]
  - Staphylococcal infection [Unknown]
  - Mucosal inflammation [Unknown]
  - Colitis [Unknown]
  - Pancytopenia [Recovered/Resolved]
  - Bacteraemia [Unknown]
  - Febrile neutropenia [Recovering/Resolving]
  - Sinusitis [Unknown]
  - Pneumonia [Unknown]
  - Hyperbilirubinaemia [Unknown]
  - Empyema [Unknown]
  - Renal failure [Unknown]
